FAERS Safety Report 8584238 (Version 3)
Quarter: 2013Q2

REPORT INFORMATION
  Report Type: Spontaneous
  Country: JP (occurrence: JP)
  Receive Date: 20120529
  Receipt Date: 20130510
  Transmission Date: 20140414
  Serious: Yes (Hospitalization)
  Sender: FDA-Public Use
  Company Number: JP-ABBOTT-12P-087-0936972-00

PATIENT
  Age: 65 Year
  Sex: Male
  Weight: 50 kg

DRUGS (10)
  1. DEPAKENE [Suspect]
     Indication: NON-SMALL CELL LUNG CANCER
     Route: 048
     Dates: start: 20120305
  2. DEPAKENE [Suspect]
     Indication: CONVULSION PROPHYLAXIS
  3. ERLOTINIB [Suspect]
     Indication: NON-SMALL CELL LUNG CANCER
     Dates: start: 20120301, end: 20120412
  4. LANSOPRAZOLE [Concomitant]
     Indication: GASTRITIS PROPHYLAXIS
     Dosage: DAILY DOSE: 15MG
     Route: 048
     Dates: start: 201011
  5. BIOLACTIS [Concomitant]
     Indication: DIARRHOEA
     Route: 048
     Dates: start: 20110309
  6. MINOPEN [Concomitant]
     Indication: PARONYCHIA
     Dosage: DAILY DOSE: 100MG
     Dates: start: 20120329
  7. CLOBETASOL PROPIONATE [Concomitant]
     Indication: PARONYCHIA
     Dates: start: 20120329
  8. GENTAMICIN SULFATE [Concomitant]
     Indication: PARONYCHIA
     Dates: start: 20120329
  9. HIRUDOID [Concomitant]
     Indication: PARONYCHIA
     Dates: start: 20120329
  10. EYE DROP (SHINRYOKUSUI) [Concomitant]
     Indication: CATARACT
     Route: 047
     Dates: start: 2011

REACTIONS (4)
  - Blood creatine phosphokinase increased [Recovered/Resolved]
  - Disorientation [Recovered/Resolved]
  - Gait disturbance [Recovered/Resolved]
  - Nausea [Recovered/Resolved]
